FAERS Safety Report 6407968-2 (Version None)
Quarter: 2009Q4

REPORT INFORMATION
  Report Type: 
  Country: None (occurrence: None)
  Receive Date: 20091016
  Receipt Date: 20051214
  Transmission Date: 20100525
  Serious: Yes (Death)
  Sender: FDA-Public Use
  Company Number: 2009008948

PATIENT
  Sex: Female

DRUGS (2)
  1. ACTIQ [Suspect]
     Indication: CANCER PAIN
     Dosage: BU
     Route: 002
  2. DURAGESIC-100 [Concomitant]

REACTIONS (1)
  - DEATH [None]
